FAERS Safety Report 9331013 (Version 2)
Quarter: 2013Q2

REPORT INFORMATION
  Report Type: Spontaneous
  Country: US (occurrence: None)
  Receive Date: 20130531
  Receipt Date: 20130619
  Transmission Date: 20140414
  Serious: Yes (Death)
  Sender: FDA-Public Use
  Company Number: 1305-687

PATIENT
  Age: 92 Year
  Sex: Male
  Weight: 74.84 kg

DRUGS (5)
  1. EYLEA [Suspect]
     Indication: AGE-RELATED MACULAR DEGENERATION
     Dates: start: 2011, end: 20130211
  2. PRADAXA (DABIGATRAN ETEXILATE MESILATE) [Concomitant]
  3. LISINOPRIL (LISINOPRIL) [Concomitant]
  4. TIMOLOL (TIMOLOL) [Concomitant]
  5. CHOLESTEROL MEDICATION [Concomitant]

REACTIONS (1)
  - Death [None]
